FAERS Safety Report 6273143-8 (Version None)
Quarter: 2009Q3

REPORT INFORMATION
  Report Type: 
  Country: None (occurrence: None)
  Receive Date: 20090715
  Receipt Date: 20090715
  Transmission Date: 20100115
  Serious: Yes (Other)
  Sender: FDA-Public Use
  Company Number: None

PATIENT
  Age: 14 Year
  Sex: Female
  Weight: 61.2356 kg

DRUGS (1)
  1. LEVETIRACETAM [Suspect]
     Indication: PARTIAL SEIZURES
     Dosage: 2 TABLETS TWICE A DAY PO
     Route: 048
     Dates: start: 20090507, end: 20090520

REACTIONS (2)
  - ANTICONVULSANT DRUG LEVEL DECREASED [None]
  - PRURITUS [None]
